FAERS Safety Report 7624828-X (Version None)
Quarter: 2011Q3

REPORT INFORMATION
  Report Type: 
  Country: None (occurrence: None)
  Receive Date: 20110720
  Receipt Date: 20110712
  Transmission Date: 20111222
  Serious: Yes (Other)
  Sender: FDA-Public Use
  Company Number: US-US-EMD SERONO, INC.-7069653

PATIENT
  Sex: Female
  Weight: 66 kg

DRUGS (7)
  1. REBIF [Suspect]
     Indication: PRODUCT USED FOR UNKNOWN INDICATION
     Route: 058
     Dates: start: 20100809
  2. DIGOXIN [Concomitant]
  3. CELEBREX [Concomitant]
  4. XANAX [Concomitant]
  5. PROAIR HFA [Concomitant]
  6. SYMBICORT [Concomitant]
  7. OMEPRAZOLE [Concomitant]

REACTIONS (6)
  - PULMONARY HYPERTENSION [None]
  - INJECTION SITE HAEMATOMA [None]
  - HEPATITIS C VIRUS TEST POSITIVE [None]
  - WEIGHT DECREASED [None]
  - HEART VALVE INCOMPETENCE [None]
  - INFLUENZA LIKE ILLNESS [None]
